FAERS Safety Report 8440377 (Version 4)
Quarter: 2013Q1

REPORT INFORMATION
  Report Type: Spontaneous
  Country: US (occurrence: US)
  Receive Date: 20120305
  Receipt Date: 20130116
  Transmission Date: 20140127
  Serious: Yes (Other)
  Sender: FDA-Public Use
  Company Number: US-ELI_LILLY_AND_COMPANY-US201201006068

PATIENT
  Age: 61 None
  Sex: Female
  Weight: 72.11 kg

DRUGS (12)
  1. FORTEO [Suspect]
     Indication: OSTEOPOROSIS
     Dosage: 20 UG, QD
     Route: 058
     Dates: start: 201111
  2. FORTEO [Suspect]
     Dosage: 20 UG, QD
     Route: 058
  3. CYMBALTA [Concomitant]
     Dosage: 30 MG, UNK
  4. FLEXERIL [Concomitant]
     Dosage: 10 MG, QD
  5. LORTAB [Concomitant]
     Dosage: UNK, QD
  6. MOBIC [Concomitant]
     Dosage: UNK, QD
  7. PREMARIN [Concomitant]
     Dosage: UNK, QD
  8. TRAMADOL [Concomitant]
     Indication: PAIN
  9. AMLODIPINE [Concomitant]
     Dosage: 10 MG, QD
  10. QUINAPRIL [Concomitant]
     Dosage: 20 MG, QD
  11. TRAZODONE [Concomitant]
     Dosage: 100 MG, QOD
  12. VALIUM                             /00017001/ [Concomitant]
     Dosage: 10 MG, UNK

REACTIONS (7)
  - Breast cancer [Unknown]
  - Fall [Recovered/Resolved]
  - Pain [Unknown]
  - Malaise [Not Recovered/Not Resolved]
  - Device malfunction [Unknown]
  - Fatigue [Not Recovered/Not Resolved]
  - Vomiting [Unknown]
